FAERS Safety Report 8979541 (Version 1)
Quarter: 2012Q4

REPORT INFORMATION
  Report Type: 
  Country: US (occurrence: US)
  Receive Date: 20121221
  Receipt Date: 20121221
  Transmission Date: 20130627
  Serious: Yes (Death)
  Sender: FDA-Public Use
  Company Number: PHEH2012US024059

PATIENT
  Sex: Male
  Weight: 75 kg

DRUGS (3)
  1. GLEEVEC [Suspect]
     Indication: ACUTE LYMPHOCYTIC LEUKAEMIA
     Dosage: 400 mg, every day
     Route: 048
     Dates: start: 20091111
  2. GLEEVEC [Suspect]
     Indication: CHRONIC MYELOID LEUKAEMIA
  3. ADVIL JUNIOR STRENGTH [Concomitant]
     Dosage: 400 mg, PRN
     Route: 048

REACTIONS (1)
  - Blast crisis in myelogenous leukaemia [Fatal]
